FAERS Safety Report 11575660 (Version 1)
Quarter: 2015Q3

REPORT INFORMATION
  Report Type: Spontaneous
  Country: US (occurrence: None)
  Receive Date: 20150929
  Receipt Date: 20150929
  Transmission Date: 20151125
  Serious: No
  Sender: FDA-Public Use
  Company Number: None

PATIENT
  Age: 57 Year
  Sex: Female
  Weight: 104.78 kg

DRUGS (5)
  1. NORTRIPTYLINE [Suspect]
     Active Substance: NORTRIPTYLINE
     Indication: ANXIETY
     Dosage: 2 PILLS AT NIGHT ONCE DAILY
     Route: 048
     Dates: start: 20120101, end: 20150913
  2. MEGA RED [Concomitant]
  3. PROBIOTIC [Concomitant]
     Active Substance: PROBIOTICS NOS
  4. NORTRIPTYLINE [Suspect]
     Active Substance: NORTRIPTYLINE
     Indication: INSOMNIA
     Dosage: 2 PILLS AT NIGHT ONCE DAILY
     Route: 048
     Dates: start: 20120101, end: 20150913
  5. VITAMINA D3 [Concomitant]

REACTIONS (6)
  - Cough [None]
  - Accidental exposure to product [None]
  - Oral discomfort [None]
  - Chemical burn of respiratory tract [None]
  - Foreign body [None]
  - Throat irritation [None]

NARRATIVE: CASE EVENT DATE: 20150913
